FAERS Safety Report 23627921 (Version 1)
Quarter: 2024Q1

REPORT INFORMATION
  Report Type: Other
  Country: GB (occurrence: None)
  Receive Date: 20240313
  Receipt Date: 20240313
  Transmission Date: 20240410
  Serious: Yes (Other)
  Sender: FDA-Public Use
  Company Number: GB-ROCHE-3521649

PATIENT

DRUGS (3)
  1. TOCILIZUMAB [Suspect]
     Active Substance: TOCILIZUMAB
     Indication: Multisystem inflammatory syndrome in children
     Dosage: 12 MG/KG IN PATIENTS {30 KG; 8MG/KG IN PATIENTS }= 30 KG, UP TO A MAXIMUM DOSE OF 800 MG
     Route: 042
  2. METHYLPREDNISOLONE [Suspect]
     Active Substance: METHYLPREDNISOLONE
     Indication: Multisystem inflammatory syndrome in children
     Route: 065
  3. ANAKINRA [Suspect]
     Active Substance: ANAKINRA
     Indication: Multisystem inflammatory syndrome in children
     Dosage: IN PATIENTS }=10 KG
     Route: 058

REACTIONS (4)
  - Arrhythmia [Unknown]
  - Haemorrhage [Unknown]
  - Thrombosis [Unknown]
  - Coronary artery aneurysm [Unknown]
